FAERS Safety Report 13818291 (Version 1)
Quarter: 2017Q3

REPORT INFORMATION
  Report Type: Spontaneous
  Country: US (occurrence: US)
  Receive Date: 20170731
  Receipt Date: 20170731
  Transmission Date: 20171127
  Serious: No
  Sender: FDA-Public Use
  Company Number: US-ROCHE-665436

PATIENT
  Age: 82 Year
  Sex: Female

DRUGS (6)
  1. NEURONTIN [Concomitant]
     Active Substance: GABAPENTIN
     Indication: FIBROMYALGIA
     Route: 065
  2. BABY ASA [Concomitant]
     Active Substance: ASPIRIN
     Dosage: DRUG NAME REPORTED AS BABY ASPIRIN
     Route: 065
  3. BONIVA [Suspect]
     Active Substance: IBANDRONATE SODIUM
     Indication: OSTEOPOROSIS
     Dosage: FORM: INFUSION
     Route: 042
     Dates: start: 20091014, end: 20091014
  4. TYLENOL [Concomitant]
     Active Substance: ACETAMINOPHEN
     Route: 065
  5. PREDNISONE. [Concomitant]
     Active Substance: PREDNISONE
     Indication: FIBROMYALGIA
     Route: 065
  6. TOPROL XL [Concomitant]
     Active Substance: METOPROLOL SUCCINATE
     Indication: PROPHYLAXIS
     Route: 065

REACTIONS (1)
  - Myalgia [Recovering/Resolving]

NARRATIVE: CASE EVENT DATE: 20091019
